FAERS Safety Report 8558555-1 (Version None)
Quarter: 2012Q3

REPORT INFORMATION
  Report Type: 
  Country: None (occurrence: None)
  Receive Date: 20120801
  Receipt Date: 20120726
  Transmission Date: 20120928
  Serious: Yes (Hospitalization)
  Sender: FDA-Public Use
  Company Number: US-CELGENEUS-163-21880-12072954

PATIENT
  Sex: Female

DRUGS (16)
  1. LEXAPRO [Concomitant]
     Route: 065
  2. LEVOTHYROXINE SODIUM [Concomitant]
     Route: 065
  3. ASPIRIN [Concomitant]
     Route: 065
  4. CARVEDILOL [Concomitant]
     Route: 065
  5. LUTEIN [Concomitant]
     Route: 065
  6. ACIPHEX [Concomitant]
     Route: 065
  7. CALCIUM [Concomitant]
     Route: 065
  8. LISINOPRIL [Concomitant]
     Route: 065
  9. VITAMIN D [Concomitant]
     Route: 065
  10. MULTI-VITAMINS [Concomitant]
     Route: 065
  11. REQUIP [Concomitant]
     Route: 065
  12. TYLENOL (CAPLET) [Concomitant]
     Route: 065
  13. PRAVASTATIN [Concomitant]
     Route: 065
  14. REVLIMID [Suspect]
     Indication: MULTIPLE MYELOMA
     Dosage: 25 MILLIGRAM
     Route: 048
     Dates: start: 20120427
  15. AMLODIPINE [Concomitant]
     Route: 065
  16. LORTAB [Concomitant]
     Route: 065

REACTIONS (3)
  - CARDIAC DISORDER [None]
  - BLOOD GLUCOSE INCREASED [None]
  - HAEMOGLOBIN DECREASED [None]
